FAERS Safety Report 9695371 (Version 1)
Quarter: 2013Q4

REPORT INFORMATION
  Report Type: Spontaneous
  Country: US (occurrence: None)
  Receive Date: 20131118
  Receipt Date: 20131118
  Transmission Date: 20140711
  Serious: Yes (Hospitalization)
  Sender: FDA-Public Use
  Company Number: None

PATIENT
  Age: 45 Year
  Sex: Male

DRUGS (1)
  1. DILAUDID [Suspect]
     Route: 042
     Dates: start: 20131101

REACTIONS (2)
  - Dyspnoea [None]
  - Wheezing [None]
